FAERS Safety Report 11512500 (Version 1)
Quarter: 2015Q3

REPORT INFORMATION
  Report Type: Report from Study
  Country: AU (occurrence: AU)
  Receive Date: 20150916
  Receipt Date: 20150916
  Transmission Date: 20151125
  Serious: Yes (Death, Other)
  Sender: FDA-Public Use
  Company Number: PHHY2015AU097184

PATIENT
  Age: 45 Year
  Sex: Male

DRUGS (2)
  1. CLOZARIL [Suspect]
     Active Substance: CLOZAPINE
     Indication: SCHIZOPHRENIA
     Dosage: UNK
     Route: 048
     Dates: start: 20080430
  2. CLOZARIL [Suspect]
     Active Substance: CLOZAPINE
     Dosage: 400 MG, QD
     Route: 048

REACTIONS (13)
  - Asthenia [Fatal]
  - Fatigue [Fatal]
  - Decreased appetite [Fatal]
  - Metastases to bone [Unknown]
  - Head injury [Unknown]
  - Cerebral haemorrhage [Fatal]
  - Metastases to liver [Unknown]
  - Ulcer [Fatal]
  - Metastases to lymph nodes [Unknown]
  - Loss of consciousness [Fatal]
  - Fall [Fatal]
  - Neuroendocrine carcinoma of the skin [Fatal]
  - Malaise [Fatal]

NARRATIVE: CASE EVENT DATE: 201505
